FAERS Safety Report 16149890 (Version 1)
Quarter: 2019Q2

REPORT INFORMATION
  Report Type: Spontaneous
  Country: US (occurrence: US)
  Receive Date: 20190402
  Receipt Date: 20190402
  Transmission Date: 20190711
  Serious: Yes (Life-Threatening, Disabling)
  Sender: FDA-Public Use
  Company Number: None

PATIENT
  Age: 77 Year
  Sex: Female
  Weight: 66.15 kg

DRUGS (5)
  1. LETROZOLE. [Concomitant]
     Active Substance: LETROZOLE
  2. CALCIUM [Concomitant]
     Active Substance: CALCIUM
  3. MELATONIN [Concomitant]
     Active Substance: MELATONIN
  4. LOSARTAN POTASSIUM 50 MG TAB [Suspect]
     Active Substance: LOSARTAN POTASSIUM
     Indication: RAYNAUD^S PHENOMENON
     Dosage: ?          QUANTITY:1 TABLET(S);?
     Route: 048
  5. LOSARTAN. [Concomitant]
     Active Substance: LOSARTAN

REACTIONS (2)
  - Recalled product [None]
  - Breast cancer [None]

NARRATIVE: CASE EVENT DATE: 20170909
